FAERS Safety Report 18507661 (Version 6)
Quarter: 2021Q3

REPORT INFORMATION
  Report Type: Report from Study
  Country: US (occurrence: US)
  Receive Date: 20201116
  Receipt Date: 20210908
  Transmission Date: 20211014
  Serious: Yes (Other)
  Sender: FDA-Public Use
  Company Number: US-TAKEDA-2020TUS046682

PATIENT
  Sex: Male
  Weight: 79 kg

DRUGS (31)
  1. LYRICA [Concomitant]
     Active Substance: PREGABALIN
  2. ALBUTEROL [SALBUTAMOL] [Concomitant]
     Active Substance: ALBUTEROL
  3. PROSTATE COMPLEX [Concomitant]
  4. DIGESTIVE ENZYMES V COMPLEX [Concomitant]
  5. TYLENOL [Concomitant]
     Active Substance: ACETAMINOPHEN
  6. ACETAMINOPHEN. [Concomitant]
     Active Substance: ACETAMINOPHEN
  7. MUCINEX [Concomitant]
     Active Substance: GUAIFENESIN
  8. ATENOLOL. [Concomitant]
     Active Substance: ATENOLOL
  9. COQ [Concomitant]
  10. CUVITRU [Suspect]
     Active Substance: HUMAN IMMUNOGLOBULIN G
     Dosage: 8 GRAM, 1/WEEK
     Route: 058
     Dates: start: 20201006
  11. FLONASE [Concomitant]
     Active Substance: FLUTICASONE PROPIONATE
  12. NEXIUM [Concomitant]
     Active Substance: ESOMEPRAZOLE MAGNESIUM
  13. VALIUM [Concomitant]
     Active Substance: DIAZEPAM
  14. MIRALAX [Concomitant]
     Active Substance: POLYETHYLENE GLYCOL 3350
  15. ESTER C [ASCORBIC ACID] [Concomitant]
     Active Substance: ASCORBIC ACID
  16. ALLEGRA [Concomitant]
     Active Substance: FEXOFENADINE HYDROCHLORIDE
  17. REGLAN [Concomitant]
     Active Substance: METOCLOPRAMIDE HYDROCHLORIDE
  18. CUVITRU [Suspect]
     Active Substance: HUMAN IMMUNOGLOBULIN G
     Indication: IMMUNODEFICIENCY COMMON VARIABLE
     Dosage: 10 GRAM, 1/WEEK
     Route: 058
     Dates: start: 20201006
  19. DIPHENHYDRAMINE. [Concomitant]
     Active Substance: DIPHENHYDRAMINE
  20. EPINEPHRINE. [Concomitant]
     Active Substance: EPINEPHRINE
  21. VITAMIN D3 [Concomitant]
     Active Substance: CHOLECALCIFEROL
  22. GLUCOSAMINE AND CHONDROITIN [Concomitant]
     Active Substance: CHONDROITIN SULFATE (BOVINE)\GLUCOSAMINE HYDROCHLORIDE
  23. PROBIOTIC [BIFIDOBACTERIUM INFANTIS;LACTOBACILLUS ACIDOPHILUS] [Concomitant]
  24. LMX4 [Concomitant]
     Active Substance: LIDOCAINE
  25. PRINIVIL [Concomitant]
     Active Substance: LISINOPRIL
  26. SYMBICORT [Concomitant]
     Active Substance: BUDESONIDE\FORMOTEROL FUMARATE DIHYDRATE
  27. RESTASIS [Concomitant]
     Active Substance: CYCLOSPORINE
  28. LIPITOR [Concomitant]
     Active Substance: ATORVASTATIN CALCIUM
  29. LEXAPRO [Concomitant]
     Active Substance: ESCITALOPRAM OXALATE
  30. OMEGA 3 + VITAMIN D [Concomitant]
  31. PROVIGIL [Concomitant]
     Active Substance: MODAFINIL

REACTIONS (13)
  - Pancreatic carcinoma [Unknown]
  - Infusion site haemorrhage [Unknown]
  - Nausea [Unknown]
  - Oral infection [Unknown]
  - Cough [Unknown]
  - Decreased appetite [Unknown]
  - Discomfort [Unknown]
  - Infusion related reaction [Unknown]
  - Infusion site swelling [Unknown]
  - Fatigue [Unknown]
  - Headache [Unknown]
  - Migraine [Unknown]
  - Blood pressure decreased [Unknown]
